FAERS Safety Report 5391805-1 (Version None)
Quarter: 2007Q3

REPORT INFORMATION
  Report Type: 
  Country: None (occurrence: None)
  Receive Date: 20070717
  Receipt Date: 20070703
  Transmission Date: 20080115
  Serious: Yes (Life-Threatening, Hospitalization)
  Sender: FDA-Public Use
  Company Number: 02100-JPN-06-0293

PATIENT
  Age: 79 Year
  Sex: Female

DRUGS (2)
  1. CILOSTAZOL [Suspect]
     Indication: CEREBROVASCULAR ACCIDENT
     Dosage: ONE OF 200 MG; ORAL
     Route: 048
     Dates: start: 20060606, end: 20060621
  2. CLOPIDOGREL [Suspect]
     Indication: PROPHYLAXIS
     Dosage: 75 MG; ORAL
     Route: 048
     Dates: start: 20060606, end: 20060621

REACTIONS (6)
  - ACUTE MYOCARDIAL INFARCTION [None]
  - CEREBRAL ARTERY OCCLUSION [None]
  - CEREBRAL INFARCTION [None]
  - DEPRESSED LEVEL OF CONSCIOUSNESS [None]
  - DISEASE RECURRENCE [None]
  - PULMONARY EMBOLISM [None]
